FAERS Safety Report 8626001-5 (Version None)
Quarter: 2012Q3

REPORT INFORMATION
  Report Type: 
  Country: None (occurrence: None)
  Receive Date: 20120827
  Receipt Date: 20120821
  Transmission Date: 20120928
  Serious: Yes (Hospitalization)
  Sender: FDA-Public Use
  Company Number: US-AMGEN-USACT2012052437

PATIENT
  Age: 66 Year
  Sex: Female

DRUGS (13)
  1. HUMALOG [Concomitant]
  2. NORVASC [Concomitant]
  3. BYETTA [Concomitant]
  4. LIPITOR [Concomitant]
  5. BACTRIM DS [Concomitant]
  6. ALLEGRA [Concomitant]
  7. COREG [Concomitant]
  8. ALLOPURINOL [Concomitant]
  9. LASIX [Concomitant]
  10. DARBEPOETIN ALFA [Suspect]
     Indication: CARDIAC FAILURE
     Dosage: UNK UNK, Q2WK
     Route: 058
     Dates: start: 20070124, end: 20120805
  11. LANTUS [Concomitant]
  12. LISINOPRIL [Concomitant]
  13. METFORMIN HCL [Concomitant]

REACTIONS (2)
  - CEREBROVASCULAR ACCIDENT [None]
  - TRANSIENT ISCHAEMIC ATTACK [None]
